FAERS Safety Report 15294766 (Version 1)
Quarter: 2018Q3

REPORT INFORMATION
  Report Type: Report from Study
  Country: US (occurrence: US)
  Receive Date: 20180820
  Receipt Date: 20180820
  Transmission Date: 20181010
  Serious: No
  Sender: FDA-Public Use
  Company Number: US-ACADIA PHARMACEUTICALS INC.-ACA-2018-009529

PATIENT
  Age: 71 Year
  Sex: Female
  Weight: 76 kg

DRUGS (3)
  1. NUPLAZID [Suspect]
     Active Substance: PIMAVANSERIN TARTRATE
     Indication: DELUSION
  2. NUPLAZID [Suspect]
     Active Substance: PIMAVANSERIN TARTRATE
     Indication: HALLUCINATION
     Dosage: 34 MG, QD
     Route: 065
     Dates: start: 20180703, end: 20180704
  3. NUPLAZID [Suspect]
     Active Substance: PIMAVANSERIN TARTRATE
     Indication: PARKINSON^S DISEASE PSYCHOSIS

REACTIONS (7)
  - Delusion [Unknown]
  - Blood pressure increased [Unknown]
  - Confusional state [Not Recovered/Not Resolved]
  - Hallucination [Unknown]
  - Nausea [Unknown]
  - Vomiting [Unknown]
  - Insomnia [Unknown]

NARRATIVE: CASE EVENT DATE: 201807
